FAERS Safety Report 8219899-6 (Version None)
Quarter: 2012Q1

REPORT INFORMATION
  Report Type: 
  Country: None (occurrence: None)
  Receive Date: 20120319
  Receipt Date: 20120309
  Transmission Date: 20120608
  Serious: Yes (Other)
  Sender: FDA-Public Use
  Company Number: US-ASTRAZENECA-2012SE16790

PATIENT
  Age: 85 Year
  Sex: Female

DRUGS (2)
  1. MILD PAIN RELIEVER [Concomitant]
  2. ARIMIDEX [Suspect]
     Route: 048

REACTIONS (2)
  - FALL [None]
  - UPPER LIMB FRACTURE [None]
